FAERS Safety Report 17929645 (Version 1)
Quarter: 2020Q2

REPORT INFORMATION
  Report Type: Spontaneous
  Country: US (occurrence: US)
  Receive Date: 20200623
  Receipt Date: 20200623
  Transmission Date: 20200714
  Serious: No
  Sender: FDA-Public Use
  Company Number: US-ALLERGAN-2009582US

PATIENT
  Age: 5 Decade
  Sex: Female

DRUGS (1)
  1. KYBELLA [Suspect]
     Active Substance: DEOXYCHOLIC ACID
     Indication: PRODUCT USED FOR UNKNOWN INDICATION
     Dosage: UNK UNK, SINGLE
     Route: 065
     Dates: start: 20200226, end: 20200226

REACTIONS (4)
  - Off label use [Unknown]
  - Injection site hypersensitivity [Unknown]
  - Injection site warmth [Unknown]
  - Erythema [Unknown]
